FAERS Safety Report 4511152-7 (Version None)
Quarter: 2004Q4

REPORT INFORMATION
  Report Type: 
  Country: None (occurrence: None)
  Receive Date: 20041012
  Receipt Date: 20040719
  Transmission Date: 20050328
  Serious: No
  Sender: FDA-Public Use
  Company Number: PHEH2004US07856

PATIENT
  Sex: Female

DRUGS (3)
  1. ELIDEL [Suspect]
     Dosage: TOPICAL
     Route: 061
  2. EMOLIENTS [Concomitant]
  3. PROTECTIVES [Concomitant]

REACTIONS (2)
  - APPLICATION SITE DRYNESS [None]
  - DERMATITIS EXFOLIATIVE [None]
